FAERS Safety Report 6092870-9 (Version None)
Quarter: 2009Q1

REPORT INFORMATION
  Report Type: 
  Country: None (occurrence: None)
  Receive Date: 20090225
  Receipt Date: 20090211
  Transmission Date: 20090719
  Serious: Yes (Hospitalization)
  Sender: FDA-Public Use
  Company Number: CA-BRISTOL-MYERS SQUIBB COMPANY-14501431

PATIENT
  Age: 76 Year
  Sex: Male

DRUGS (11)
  1. BRIVANIB ALANINATE [Suspect]
     Indication: COLORECTAL CANCER METASTATIC
     Route: 048
     Dates: start: 20090123
  2. CETUXIMAB [Suspect]
     Indication: COLORECTAL CANCER METASTATIC
     Dosage: INITIATED ON 23-JAN-2009
     Route: 042
     Dates: start: 20090206, end: 20090206
  3. PLACEBO [Suspect]
     Indication: COLORECTAL CANCER METASTATIC
     Route: 048
     Dates: start: 20090123
  4. PANTOPRAZOLE SODIUM [Concomitant]
     Indication: GASTROOESOPHAGEAL REFLUX DISEASE
     Dates: start: 20081001, end: 20090206
  5. ATENOLOL [Concomitant]
     Indication: HYPERTENSION
     Dates: start: 20081001, end: 20090206
  6. VENTOLIN [Concomitant]
     Indication: ASTHMA
  7. NORVASC [Concomitant]
     Indication: HYPERTENSION
     Dates: start: 20081001, end: 20090206
  8. METFORMIN [Concomitant]
     Indication: TYPE 2 DIABETES MELLITUS
     Dates: start: 20081001, end: 20090206
  9. GLYBURIDE [Concomitant]
     Indication: TYPE 2 DIABETES MELLITUS
  10. HUMULIN N [Concomitant]
     Indication: TYPE 2 DIABETES MELLITUS
     Dates: start: 20081001, end: 20081203
  11. GLICLAZIDE [Concomitant]
     Indication: TYPE 2 DIABETES MELLITUS
     Dates: start: 20081008, end: 20090206

REACTIONS (1)
  - HYPOGLYCAEMIA [None]
